FAERS Safety Report 19223884 (Version 1)
Quarter: 2021Q2

REPORT INFORMATION
  Report Type: Not Available
  Country: None (occurrence: None)
  Receive Date: 20210506
  Receipt Date: 20210506
  Transmission Date: 20210717
  Serious: Yes (Hospitalization, Other)
  Sender: FDA-Public Use
  Company Number: US-AKORN-166594

PATIENT
  Age: 52 Year
  Sex: Male

DRUGS (1)
  1. DEXMEDETOMIDINE HYDROCHLORIDE INJECTION [Suspect]
     Active Substance: DEXMEDETOMIDINE HYDROCHLORIDE

REACTIONS (5)
  - Sepsis [Unknown]
  - Klebsiella test positive [Unknown]
  - Hyperthermia [Unknown]
  - Agitation [Unknown]
  - Hypoxia [Unknown]
